FAERS Safety Report 18967672 (Version 2)
Quarter: 2021Q2

REPORT INFORMATION
  Report Type: Report from Study
  Country: FR (occurrence: FR)
  Receive Date: 20210304
  Receipt Date: 20210427
  Transmission Date: 20210717
  Serious: Yes (Hospitalization, Other)
  Sender: FDA-Public Use
  Company Number: FR-BRISTOL-MYERS SQUIBB COMPANY-BMS-2021-019929

PATIENT
  Age: 65 Year
  Sex: Female
  Weight: 57 kg

DRUGS (6)
  1. INFLIXIMAB [Suspect]
     Active Substance: INFLIXIMAB
     Dosage: 300 MILLIGRAM
     Route: 042
     Dates: start: 20210409
  2. IPILIMUMAB [Suspect]
     Active Substance: IPILIMUMAB
     Dosage: 180 MILLIGRAM
     Route: 042
     Dates: start: 20210409
  3. NIVOLUMAB [Suspect]
     Active Substance: NIVOLUMAB
     Indication: MALIGNANT MELANOMA
     Dosage: 60 MILLIGRAM
     Route: 042
     Dates: start: 20210113
  4. NIVOLUMAB [Suspect]
     Active Substance: NIVOLUMAB
     Dosage: 60 MILLIGRAM
     Route: 042
     Dates: start: 20210409
  5. IPILIMUMAB [Suspect]
     Active Substance: IPILIMUMAB
     Indication: MALIGNANT MELANOMA
     Dosage: 180 MILLIGRAM
     Route: 042
     Dates: start: 20210113
  6. INFLIXIMAB [Suspect]
     Active Substance: INFLIXIMAB
     Indication: MALIGNANT MELANOMA
     Dosage: 300 MILLIGRAM
     Route: 042
     Dates: start: 20210113

REACTIONS (1)
  - Myocardial ischaemia [Recovered/Resolved]

NARRATIVE: CASE EVENT DATE: 20210226
